FAERS Safety Report 7164241-5 (Version None)
Quarter: 2010Q4

REPORT INFORMATION
  Report Type: 
  Country: None (occurrence: None)
  Receive Date: 20101201
  Receipt Date: 20101122
  Transmission Date: 20110411
  Serious: Yes (Hospitalization)
  Sender: FDA-Public Use
  Company Number: NGX_00174_2010

PATIENT
  Age: 68 Year
  Sex: Male

DRUGS (1)
  1. QUTENZA [Suspect]
     Indication: POST HERPETIC NEURALGIA
     Dosage: (2 DF, [PLASTER] TOPICAL)
     Route: 061
     Dates: start: 20101117, end: 20101117

REACTIONS (4)
  - APPLICATION SITE ERYTHEMA [None]
  - APPLICATION SITE PAIN [None]
  - HYPERHIDROSIS [None]
  - NAUSEA [None]
